FAERS Safety Report 20356181 (Version 1)
Quarter: 2022Q1

REPORT INFORMATION
  Report Type: Spontaneous
  Country: US (occurrence: None)
  Receive Date: 20220119
  Receipt Date: 20220119
  Transmission Date: 20220423
  Serious: Yes (Hospitalization, Disabling)
  Sender: FDA-Public Use
  Company Number: None

PATIENT
  Age: 39 Year
  Sex: Female
  Weight: 112.5 kg

DRUGS (7)
  1. PAMIDRONATE DISODIUM [Suspect]
     Active Substance: PAMIDRONATE DISODIUM
     Indication: Complex regional pain syndrome
     Dosage: OTHER QUANTITY : 1 INJECTION(S);?OTHER FREQUENCY : ONE TIME DOSE;?
     Route: 042
     Dates: start: 20211115, end: 20211115
  2. ASCORBIC ACID [Concomitant]
     Active Substance: ASCORBIC ACID
  3. CALCIUM CARBONATE [Concomitant]
     Active Substance: CALCIUM CARBONATE
  4. HERBALS\TURMERIC [Concomitant]
     Active Substance: HERBALS\TURMERIC
  5. VITAMIN D [Concomitant]
     Active Substance: VITAMIN D NOS
  6. MAGNESIUM CITRATE [Concomitant]
     Active Substance: MAGNESIUM CITRATE
  7. THRONE PRENATAL VITAMIN [Concomitant]

REACTIONS (10)
  - Off label use [None]
  - Impaired healing [None]
  - Urinary retention [None]
  - Pyrexia [None]
  - Headache [None]
  - Pain [None]
  - Heart rate increased [None]
  - Blood pressure increased [None]
  - Gait disturbance [None]
  - Muscle tightness [None]

NARRATIVE: CASE EVENT DATE: 20211115
